FAERS Safety Report 23531206 (Version 3)
Quarter: 2024Q3

REPORT INFORMATION
  Report Type: Spontaneous
  Country: JP (occurrence: JP)
  Receive Date: 20240216
  Receipt Date: 20240710
  Transmission Date: 20241017
  Serious: Yes (Other)
  Sender: PIERRE FABRE MEDICAMENT
  Company Number: JP-maruho-EVD202400294PFM

PATIENT
  Age: 2 Month

DRUGS (1)
  1. PROPRANOLOL HYDROCHLORIDE [Suspect]
     Active Substance: PROPRANOLOL HYDROCHLORIDE
     Indication: Infantile haemangioma
     Dosage: 0.5 MG/KG, BID (2/DAY), SECOND DOSE DISCONTINUED
     Route: 048
     Dates: start: 20240130, end: 20240130

REACTIONS (1)
  - Intussusception [Unknown]

NARRATIVE: CASE EVENT DATE: 20240130
